FAERS Safety Report 4293512-5 (Version None)
Quarter: 2004Q1

REPORT INFORMATION
  Report Type: 
  Country: None (occurrence: None)
  Receive Date: 20040126
  Receipt Date: 20031015
  Transmission Date: 20041129
  Serious: No
  Sender: FDA-Public Use
  Company Number: USA031049773

PATIENT
  Age: 50 Year
  Sex: Female

DRUGS (5)
  1. FORTEO [Suspect]
     Indication: OSTEOPOROSIS
     Dosage: 20 UG/DAY
     Dates: start: 20030821
  2. CALCIUM [Concomitant]
  3. PREVACID [Concomitant]
  4. ESTROGEN NOS [Concomitant]
  5. VITAMIN D [Concomitant]

REACTIONS (13)
  - ANXIETY [None]
  - ARTHRALGIA [None]
  - ASTHENIA [None]
  - BONE PAIN [None]
  - DEPRESSED MOOD [None]
  - DEPRESSION [None]
  - HEART RATE INCREASED [None]
  - INJECTION SITE ERYTHEMA [None]
  - INJECTION SITE STINGING [None]
  - INSOMNIA [None]
  - MUSCLE CRAMP [None]
  - NAUSEA [None]
  - STRESS SYMPTOMS [None]
